FAERS Safety Report 9768324 (Version 1)
Quarter: 2013Q4

REPORT INFORMATION
  Report Type: Spontaneous
  Country: IT (occurrence: IT)
  Receive Date: 20131217
  Receipt Date: 20131217
  Transmission Date: 20140711
  Serious: Yes (Death)
  Sender: FDA-Public Use
  Company Number: PHHY2013IT145311

PATIENT
  Sex: Male

DRUGS (3)
  1. LEVOFLOXACIN [Suspect]
     Indication: PNEUMONIA
     Route: 042
  2. CEFTRIAXONE [Concomitant]
  3. INFLUENZA VACCINE [Concomitant]
     Dates: start: 20131114, end: 20131114

REACTIONS (3)
  - Bronchospasm [Fatal]
  - Dyspnoea [Fatal]
  - Hyperhidrosis [Fatal]
